FAERS Safety Report 10004188 (Version 6)
Quarter: 2014Q2

REPORT INFORMATION
  Report Type: Spontaneous
  Country: US (occurrence: US)
  Receive Date: 20140312
  Receipt Date: 20140528
  Transmission Date: 20141212
  Serious: Yes (Disabling)
  Sender: FDA-Public Use
  Company Number: US-009507513-1205USA03994

PATIENT
  Sex: Male

DRUGS (2)
  1. PROPECIA [Suspect]
     Indication: ANDROGENETIC ALOPECIA
     Dosage: 1 MG, QD
     Route: 048
     Dates: start: 20051205
  2. PROPECIA [Suspect]
     Indication: ALOPECIA

REACTIONS (15)
  - Cognitive disorder [Not Recovered/Not Resolved]
  - Anxiety [Not Recovered/Not Resolved]
  - Depression [Not Recovered/Not Resolved]
  - Sexual dysfunction [Not Recovered/Not Resolved]
  - Blood testosterone free decreased [Recovered/Resolved]
  - Tri-iodothyronine uptake increased [Recovered/Resolved]
  - Back pain [Not Recovered/Not Resolved]
  - Type 2 diabetes mellitus [Unknown]
  - Hepatitis C [Unknown]
  - Insomnia [Unknown]
  - Blood cholesterol increased [Unknown]
  - Benign prostatic hyperplasia [Unknown]
  - Urinary tract obstruction [Unknown]
  - Drug dependence [Unknown]
  - Erectile dysfunction [Unknown]
